FAERS Safety Report 11349814 (Version 1)
Quarter: 2015Q3

REPORT INFORMATION
  Report Type: Spontaneous
  Country: BR (occurrence: BR)
  Receive Date: 20150807
  Receipt Date: 20150807
  Transmission Date: 20151125
  Serious: Yes (Hospitalization)
  Sender: FDA-Public Use
  Company Number: BR-ELI_LILLY_AND_COMPANY-BR201507009663

PATIENT
  Age: 54 Year
  Sex: Male
  Weight: 98 kg

DRUGS (4)
  1. JANUMET [Concomitant]
     Active Substance: METFORMIN HYDROCHLORIDE\SITAGLIPTIN PHOSPHATE
     Dosage: UNK, UNKNOWN
     Route: 065
     Dates: start: 2012
  2. DIAMICRON [Concomitant]
     Active Substance: GLICLAZIDE
     Dosage: UNK, UNKNOWN
     Route: 065
     Dates: start: 2009
  3. HUMULIN N [Suspect]
     Active Substance: INSULIN HUMAN
     Indication: TYPE 2 DIABETES MELLITUS
     Dosage: 20 IU, QD
     Route: 058
  4. HUMULIN N [Suspect]
     Active Substance: INSULIN HUMAN
     Dosage: 14 IU, QD
     Route: 058

REACTIONS (4)
  - Extremity necrosis [Recovering/Resolving]
  - Hypoaesthesia [Not Recovered/Not Resolved]
  - Limb injury [Not Recovered/Not Resolved]
  - Blood glucose fluctuation [Not Recovered/Not Resolved]

NARRATIVE: CASE EVENT DATE: 20150319
